FAERS Safety Report 25372890 (Version 1)
Quarter: 2025Q2

REPORT INFORMATION
  Report Type: Report from Study
  Country: FR (occurrence: FR)
  Receive Date: 20250529
  Receipt Date: 20250529
  Transmission Date: 20250716
  Serious: Yes (Congenital Anomaly, Other)
  Sender: AUROBINDO
  Company Number: FR-TEVA-2018-FR-887955

PATIENT

DRUGS (1)
  1. FLECAINIDE [Suspect]
     Active Substance: FLECAINIDE
     Indication: Arrhythmogenic right ventricular dysplasia
     Route: 065

REACTIONS (2)
  - Antiphospholipid syndrome [Unknown]
  - Foetal exposure during pregnancy [Unknown]
